FAERS Safety Report 4936092-0 (Version None)
Quarter: 2006Q1

REPORT INFORMATION
  Report Type: 
  Country: None (occurrence: None)
  Receive Date: 20060307
  Receipt Date: 20051011
  Transmission Date: 20060701
  Serious: No
  Sender: FDA-Public Use
  Company Number: US-GLAXOSMITHKLINE-A0577854A

PATIENT
  Age: 44 Year
  Sex: Female
  Weight: 109.1 kg

DRUGS (2)
  1. REQUIP [Suspect]
     Indication: RESTLESS LEGS SYNDROME
     Route: 048
     Dates: end: 20051011
  2. NO CONCURRENT MEDICATION [Concomitant]

REACTIONS (10)
  - BACK PAIN [None]
  - DIZZINESS [None]
  - EAR DISCOMFORT [None]
  - FATIGUE [None]
  - GAIT DISTURBANCE [None]
  - INSOMNIA [None]
  - MYALGIA [None]
  - SENSATION OF HEAVINESS [None]
  - SINUS CONGESTION [None]
  - SOMNOLENCE [None]
